FAERS Safety Report 19920117 (Version 2)
Quarter: 2022Q1

REPORT INFORMATION
  Report Type: Report from Study
  Country: US (occurrence: US)
  Receive Date: 20211005
  Receipt Date: 20220115
  Transmission Date: 20220423
  Serious: No
  Sender: FDA-Public Use
  Company Number: US-REGENERON PHARMACEUTICALS, INC.-2021-87883

PATIENT
  Age: 72 Year
  Sex: Female

DRUGS (2)
  1. CASIRIVIMAB\IMDEVIMAB [Suspect]
     Active Substance: CASIRIVIMAB\IMDEVIMAB
     Indication: COVID-19
     Dosage: 600 MG, SINGLE, CASIRIVIMAB (REGN10933)
     Route: 042
     Dates: start: 20210913, end: 20210913
  2. CASIRIVIMAB\IMDEVIMAB [Suspect]
     Active Substance: CASIRIVIMAB\IMDEVIMAB
     Dosage: 600 MG, SINGLE, IMDEVIMAB (REGN10987)
     Route: 042
     Dates: start: 20210915, end: 20210915

REACTIONS (2)
  - Product administration error [Unknown]
  - Product label issue [Unknown]

NARRATIVE: CASE EVENT DATE: 20210913
